FAERS Safety Report 9496708 (Version 3)
Quarter: 2014Q1

REPORT INFORMATION
  Report Type: Spontaneous
  Country: JP (occurrence: None)
  Receive Date: 20130830
  Receipt Date: 20140128
  Transmission Date: 20141002
  Serious: Yes (Life-Threatening, Hospitalization, Other)
  Sender: FDA-Public Use
  Company Number: ADR-2013-01513

PATIENT
  Age: 33 Year
  Sex: Female

DRUGS (1)
  1. GABALON INTRATHECAL [Suspect]
     Dates: start: 20110705

REACTIONS (4)
  - Cardio-respiratory arrest [None]
  - Cardiac disorder [None]
  - Brain hypoxia [None]
  - Spastic paralysis [None]
